FAERS Safety Report 23605792 (Version 5)
Quarter: 2024Q4

REPORT INFORMATION
  Report Type: Spontaneous
  Country: US (occurrence: US)
  Receive Date: 20240307
  Receipt Date: 20241206
  Transmission Date: 20250115
  Serious: No
  Sender: SANOFI AVENTIS
  Company Number: US-SA-SAC20240306000312

PATIENT
  Age: 22 Year
  Sex: Female

DRUGS (1)
  1. DUPIXENT [Suspect]
     Active Substance: DUPILUMAB
     Indication: Eosinophilic oesophagitis
     Dosage: 300 MG, QW
     Route: 058
     Dates: start: 202401

REACTIONS (15)
  - Pain [Unknown]
  - Chills [Unknown]
  - Hot flush [Unknown]
  - Respiratory tract infection [Recovering/Resolving]
  - Cough [Not Recovered/Not Resolved]
  - Gastrooesophageal reflux disease [Not Recovered/Not Resolved]
  - Condition aggravated [Not Recovered/Not Resolved]
  - Dyspepsia [Not Recovered/Not Resolved]
  - Dry throat [Not Recovered/Not Resolved]
  - Haemoptysis [Not Recovered/Not Resolved]
  - Chest pain [Recovered/Resolved]
  - Muscle spasms [Unknown]
  - Vision blurred [Unknown]
  - Eosinophilic oesophagitis [Recovered/Resolved]
  - Drug ineffective [Unknown]

NARRATIVE: CASE EVENT DATE: 20240101
